FAERS Safety Report 24322236 (Version 1)
Quarter: 2024Q3

REPORT INFORMATION
  Report Type: Spontaneous
  Country: FR (occurrence: FR)
  Receive Date: 20240916
  Receipt Date: 20240916
  Transmission Date: 20241016
  Serious: Yes (Hospitalization)
  Sender: BOEHRINGER INGELHEIM
  Company Number: None

PATIENT
  Age: 58 Year
  Sex: Male
  Weight: 86.25 kg

DRUGS (10)
  1. JARDIANCE [Suspect]
     Active Substance: EMPAGLIFLOZIN
     Indication: Ketosis-prone diabetes mellitus
     Route: 048
     Dates: start: 202405, end: 20240706
  2. LIPTRUZET 10 mg/20 mg, film coated tablet [Concomitant]
     Indication: Cardiovascular event prophylaxis
     Route: 048
  3. AMIODARONE ALMUS 200 mg, scored tablet [Concomitant]
     Indication: Atrial fibrillation
     Route: 048
  4. RAMIPRIL [Concomitant]
     Active Substance: RAMIPRIL
     Indication: Myocardial ischaemia
     Route: 048
  5. ASPIRIN [Concomitant]
     Active Substance: ASPIRIN
     Indication: Cardiovascular event prophylaxis
     Route: 048
  6. POTASSIUM [Concomitant]
     Active Substance: POTASSIUM
     Indication: Hypokalaemia
     Route: 048
  7. HUMALOG 100 U/ml, injectable solution in 1.5 ml cartridge [Concomitant]
     Indication: Ketosis-prone diabetes mellitus
     Route: 058
  8. XARELTO 20 mg, film coated tablet [Concomitant]
     Indication: Atrial fibrillation
     Route: 048
  9. CARDENSIEL 5 mg, scored film-coated tablet [Concomitant]
     Indication: Myocardial ischaemia
     Route: 048
  10. FUROSEMIDE [Concomitant]
     Active Substance: FUROSEMIDE
     Indication: Myocardial ischaemia
     Route: 048

REACTIONS (2)
  - Product use in unapproved indication [Recovered/Resolved]
  - Ketosis [Recovered/Resolved]

NARRATIVE: CASE EVENT DATE: 20240501
